FAERS Safety Report 6638099-4 (Version None)
Quarter: 2010Q1

REPORT INFORMATION
  Report Type: 
  Country: None (occurrence: None)
  Receive Date: 20100317
  Receipt Date: 20100308
  Transmission Date: 20100710
  Serious: Yes (Other)
  Sender: FDA-Public Use
  Company Number: US-ASTRAZENECA-2010SE09868

PATIENT
  Sex: Female

DRUGS (1)
  1. NEXIUM [Suspect]
     Route: 048

REACTIONS (14)
  - ATAXIA [None]
  - BIOPSY BONE MARROW ABNORMAL [None]
  - DYSPHAGIA [None]
  - EAR DISORDER [None]
  - GASTRIC DISORDER [None]
  - HYPOTHYROIDISM [None]
  - MEMORY IMPAIRMENT [None]
  - NERVE INJURY [None]
  - OSCILLOPSIA [None]
  - RHEUMATOID FACTOR INCREASED [None]
  - VESTIBULAR DISORDER [None]
  - VISION BLURRED [None]
  - VITAMIN B COMPLEX DEFICIENCY [None]
  - WEIGHT DECREASED [None]
